FAERS Safety Report 10549525 (Version 1)
Quarter: 2014Q4

REPORT INFORMATION
  Report Type: Spontaneous
  Country: US (occurrence: US)
  Receive Date: 20141028
  Receipt Date: 20141028
  Transmission Date: 20150529
  Serious: No
  Sender: FDA-Public Use
  Company Number: US-GILEAD-2014-0119911

PATIENT
  Age: 47 Year
  Sex: Female

DRUGS (2)
  1. SOVALDI [Suspect]
     Active Substance: SOFOSBUVIR
     Indication: HEPATITIS C
     Dosage: 400 MG, QD
     Route: 048
     Dates: start: 201410
  2. OLYSIO [Concomitant]
     Active Substance: SIMEPREVIR

REACTIONS (3)
  - Vomiting [Unknown]
  - Nausea [Unknown]
  - Decreased appetite [Unknown]
